FAERS Safety Report 8507106-6 (Version None)
Quarter: 2012Q3

REPORT INFORMATION
  Report Type: 
  Country: None (occurrence: None)
  Receive Date: 20120712
  Receipt Date: 20120703
  Transmission Date: 20120928
  Serious: Yes (Disabling, Other)
  Sender: FDA-Public Use
  Company Number: CA-FRI-1000036969

PATIENT
  Age: 20 Year
  Sex: Female
  Weight: 50 kg

DRUGS (2)
  1. CELEXA [Suspect]
     Dosage: 60 MG
     Route: 048
  2. CLONAZEPAM [Concomitant]

REACTIONS (3)
  - AGGRESSION [None]
  - CONVULSION [None]
  - INTENTIONAL SELF-INJURY [None]
